FAERS Safety Report 16803985 (Version 1)
Quarter: 2019Q3

REPORT INFORMATION
  Report Type: Spontaneous
  Country: JP (occurrence: JP)
  Receive Date: 20190913
  Receipt Date: 20190913
  Transmission Date: 20191005
  Serious: Yes (Death, Other)
  Sender: FDA-Public Use
  Company Number: JP-ASTELLAS-2019US036185

PATIENT

DRUGS (1)
  1. AMBISOME [Suspect]
     Active Substance: AMPHOTERICIN B
     Indication: ACUTE MYELOID LEUKAEMIA
     Route: 041

REACTIONS (2)
  - Pneumonia [Fatal]
  - Product use in unapproved indication [Recovered/Resolved]
